FAERS Safety Report 5536979-4 (Version None)
Quarter: 2007Q4

REPORT INFORMATION
  Report Type: 
  Country: None (occurrence: None)
  Receive Date: 20071207
  Receipt Date: 20071128
  Transmission Date: 20080405
  Serious: Yes (Hospitalization, Other)
  Sender: FDA-Public Use
  Company Number: JP-JNJFOC-20060700320

PATIENT
  Sex: Female
  Weight: 57 kg

DRUGS (55)
  1. REMICADE [Suspect]
     Route: 042
  2. REMICADE [Suspect]
     Route: 042
  3. REMICADE [Suspect]
     Route: 042
  4. REMICADE [Suspect]
     Route: 042
  5. REMICADE [Suspect]
     Route: 042
  6. REMICADE [Suspect]
     Route: 042
  7. REMICADE [Suspect]
     Dosage: DOSE NUMBER 4-8 GIVEN ON UNSPECIFIED DATES.
     Route: 042
  8. REMICADE [Suspect]
     Dosage: DOSE NUMBER 4-8 GIVEN ON UNSPECIFIED DATES.
     Route: 042
  9. REMICADE [Suspect]
     Dosage: DOSE NUMBER 4-8 GIVEN ON UNSPECIFIED DATES.
     Route: 042
  10. REMICADE [Suspect]
     Dosage: DOSE NUMBER 4-8 GIVEN ON UNSPECIFIED DATES.
     Route: 042
  11. REMICADE [Suspect]
     Dosage: DOSE NUMBER 4-8 GIVEN ON UNSPECIFIED DATES.
     Route: 042
  12. REMICADE [Suspect]
     Route: 042
  13. REMICADE [Suspect]
     Route: 042
  14. REMICADE [Suspect]
     Indication: RHEUMATOID ARTHRITIS
     Route: 042
  15. METOLATE [Concomitant]
     Indication: RHEUMATOID ARTHRITIS
     Route: 048
  16. ALESION [Concomitant]
     Indication: PREMEDICATION
     Dosage: 1 TAB
     Route: 048
  17. PREDONINE [Concomitant]
     Route: 048
  18. PREDONINE [Concomitant]
     Indication: RHEUMATOID ARTHRITIS
     Route: 048
  19. RIMATIL [Concomitant]
     Indication: RHEUMATOID ARTHRITIS
     Route: 048
  20. MUCOSTA [Concomitant]
     Indication: RHEUMATOID ARTHRITIS
     Route: 048
  21. DEPAS [Concomitant]
     Route: 048
  22. ALFAROL [Concomitant]
     Route: 048
  23. ANTIHISTAMINES [Concomitant]
  24. ANTIHISTAMINES [Concomitant]
  25. ANTIHISTAMINES [Concomitant]
  26. ANTIHISTAMINES [Concomitant]
  27. ANTIHISTAMINES [Concomitant]
  28. ANTIHISTAMINES [Concomitant]
  29. ANTIHISTAMINES [Concomitant]
  30. ANTIHISTAMINES [Concomitant]
  31. ANTIHISTAMINES [Concomitant]
  32. ANTIHISTAMINES [Concomitant]
  33. ANTIHISTAMINES [Concomitant]
  34. ANTIHISTAMINES [Concomitant]
  35. ANTIHISTAMINES [Concomitant]
  36. ANTIHISTAMINES [Concomitant]
     Indication: PROPHYLAXIS
  37. NEOPHAGEN [Concomitant]
  38. NEOPHAGEN [Concomitant]
  39. NEOPHAGEN [Concomitant]
  40. NEOPHAGEN [Concomitant]
  41. NEOPHAGEN [Concomitant]
  42. NEOPHAGEN [Concomitant]
  43. NEOPHAGEN [Concomitant]
  44. NEOPHAGEN [Concomitant]
  45. NEOPHAGEN [Concomitant]
  46. NEOPHAGEN [Concomitant]
  47. NEOPHAGEN [Concomitant]
  48. NEOPHAGEN [Concomitant]
  49. NEOPHAGEN [Concomitant]
  50. NEOPHAGEN [Concomitant]
     Indication: PROPHYLAXIS
  51. ADRENAL HORMONE PREPARATION [Concomitant]
  52. ADRENAL HORMONE PREPARATION [Concomitant]
  53. ADRENAL HORMONE PREPARATION [Concomitant]
  54. ADRENAL HORMONE PREPARATION [Concomitant]
  55. ADRENAL HORMONE PREPARATION [Concomitant]
     Indication: PROPHYLAXIS

REACTIONS (9)
  - BACK PAIN [None]
  - CHEST PAIN [None]
  - CHILLS [None]
  - HYPERHIDROSIS [None]
  - HYPOXIA [None]
  - INFUSION RELATED REACTION [None]
  - NAUSEA [None]
  - PALPITATIONS [None]
  - VOMITING [None]
